FAERS Safety Report 4618706-8 (Version None)
Quarter: 2005Q1

REPORT INFORMATION
  Report Type: 
  Country: None (occurrence: None)
  Receive Date: 20050324
  Receipt Date: 20050308
  Transmission Date: 20050727
  Serious: Yes (Hospitalization, Other)
  Sender: FDA-Public Use
  Company Number: USA050290149

PATIENT
  Age: 86 Year
  Sex: Female

DRUGS (17)
  1. FORTEO [Suspect]
     Indication: OSTEOPOROSIS
     Dosage: 20 UG DAY
     Dates: start: 20030913
  2. PREDNISONE [Concomitant]
  3. ADVAIR DISKUS 100/50 [Concomitant]
  4. NEURONTIN (GABAPENTIN PFIZER) [Concomitant]
  5. DEMADEX [Concomitant]
  6. POTASSIUM CHLORIDE [Concomitant]
  7. REQUIP [Concomitant]
  8. IRON [Concomitant]
  9. HYDROCHLOROTHIAZIDE [Concomitant]
  10. IPRATROPIUM BROMIDE [Concomitant]
  11. LOTREL [Concomitant]
  12. ZOCOR (SIMVASTATIN RATIOPHARM) [Concomitant]
  13. ASPIRIN TAB [Concomitant]
  14. AZULFIDINE [Concomitant]
  15. NEXIUM [Concomitant]
  16. HYOSCYAMINE [Concomitant]
  17. QUININE SULFATE [Concomitant]

REACTIONS (8)
  - BLINDNESS [None]
  - BRONCHITIS [None]
  - CHRONIC OBSTRUCTIVE AIRWAYS DISEASE EXACERBATED [None]
  - MEDICAL DEVICE COMPLICATION [None]
  - NASOPHARYNGITIS [None]
  - PHARMACEUTICAL PRODUCT COMPLAINT [None]
  - SINUSITIS [None]
  - TRANSIENT ISCHAEMIC ATTACK [None]
